APPROVED DRUG PRODUCT: CHLOROPROCAINE HYDROCHLORIDE
Active Ingredient: CHLOROPROCAINE HYDROCHLORIDE
Strength: 2%
Dosage Form/Route: INJECTABLE;INJECTION
Application: A087447 | Product #001
Applicant: HOSPIRA INC
Approved: Apr 16, 1982 | RLD: No | RS: No | Type: DISCN